FAERS Safety Report 9520891 (Version 1)
Quarter: 2013Q1

REPORT INFORMATION
  Report Type: Spontaneous
  Country: US (occurrence: None)
  Receive Date: 20130305
  Receipt Date: 20130305
  Transmission Date: 20140127
  Serious: No
  Sender: FDA-Public Use
  Company Number: 163-21880-12080063

PATIENT
  Age: 49 Year
  Sex: Female

DRUGS (1)
  1. REVLIMID (LENALIDOMIDE) (CAPSULES) [Suspect]
     Indication: PLASMA CELL MYELOMA
     Dosage: 25MG, 14 IN 21D, PO
     Route: 048
     Dates: start: 20120427

REACTIONS (3)
  - Respiratory tract infection [None]
  - White blood cell count decreased [None]
  - Urticaria [None]
